FAERS Safety Report 8383679 (Version 6)
Quarter: 2021Q2

REPORT INFORMATION
  Report Type: Spontaneous
  Country: US (occurrence: US)
  Receive Date: 20120201
  Receipt Date: 20210413
  Transmission Date: 20210717
  Serious: Yes (Other)
  Sender: FDA-Public Use
  Company Number: US-PFIZER INC-2012026946

PATIENT
  Age: 63 Year
  Sex: Female
  Weight: 78 kg

DRUGS (19)
  1. CHANTIX [Suspect]
     Active Substance: VARENICLINE TARTRATE
     Indication: SMOKING CESSATION THERAPY
     Dosage: UNK
     Route: 048
  2. FEMARA [Concomitant]
     Active Substance: LETROZOLE
     Indication: LYMPHOMA
  3. LISINOPRIL. [Concomitant]
     Active Substance: LISINOPRIL
     Dosage: 40 MG, 1X/DAY (TAKE 1 TABLET DAILY)
     Route: 048
     Dates: start: 20100201
  4. CHANTIX [Suspect]
     Active Substance: VARENICLINE TARTRATE
     Dosage: UNK
     Route: 048
     Dates: start: 201203
  5. SYMBICORT [Concomitant]
     Active Substance: BUDESONIDE\FORMOTEROL FUMARATE DIHYDRATE
     Dosage: UNK, 80?4.5 MCG/ACT INHALATION AEROSOL, INHALE 2 PUFFS DAILY
     Route: 055
     Dates: start: 20120223
  6. FEMARA [Concomitant]
     Active Substance: LETROZOLE
     Indication: BREAST CANCER
     Dosage: 2.5 MG, UNK
     Dates: start: 2002
  7. GLIMEPIRIDE. [Concomitant]
     Active Substance: GLIMEPIRIDE
     Dosage: 4 MG, 2X/DAY (TAKE ONE TABLET BEFORE BREAKFAST AND BEFORE SUPPER)
     Route: 048
     Dates: start: 20120615
  8. CHANTIX [Suspect]
     Active Substance: VARENICLINE TARTRATE
     Dosage: 0.5 MG, DAILY
     Route: 048
     Dates: start: 20120306, end: 201203
  9. ZOLPIDEM TARTRATE. [Concomitant]
     Active Substance: ZOLPIDEM TARTRATE
     Dosage: 10 MG, 1X/DAY (1 TABLET DAILY AT BEDTIME)
     Route: 048
     Dates: start: 20091218
  10. CHANTIX [Suspect]
     Active Substance: VARENICLINE TARTRATE
     Dosage: 1 MG, 2X/DAY (CONTINUING MONTH PACK)
     Route: 048
     Dates: start: 20120829
  11. CRESTOR [Concomitant]
     Active Substance: ROSUVASTATIN CALCIUM
     Indication: BLOOD CHOLESTEROL INCREASED
     Dosage: 10 MG, UNK
  12. CHANTIX [Suspect]
     Active Substance: VARENICLINE TARTRATE
     Dosage: 0.5 MG, 1X/DAY
     Route: 048
     Dates: start: 2011, end: 2011
  13. FEMARA [Concomitant]
     Active Substance: LETROZOLE
     Indication: CERVIX CARCINOMA
  14. VITAMIN D [Concomitant]
     Active Substance: VITAMIN D NOS
     Dosage: 1000 IU, 1X/DAY
     Route: 048
     Dates: start: 20120109
  15. LEVOTHYROXINE SODIUM. [Concomitant]
     Active Substance: LEVOTHYROXINE SODIUM
     Dosage: 175 UG, 1X/DAY (1 TABLET DAILY)
     Route: 048
     Dates: start: 20081007
  16. CHANTIX [Suspect]
     Active Substance: VARENICLINE TARTRATE
     Dosage: 0.5 MG, (STARTING MONTH PACK 0.5 MG X 11 + 1 MG X 42 ORAL TABLET), TAKE AS DIRECTED
     Route: 048
     Dates: start: 20120830
  17. METFORMIN HYDROCHLORIDE. [Concomitant]
     Active Substance: METFORMIN HYDROCHLORIDE
     Indication: DIABETES MELLITUS
     Dosage: 500 MG, UNK
  18. ALPRAZOLAM. [Concomitant]
     Active Substance: ALPRAZOLAM
     Indication: ANXIETY
     Dosage: 0.5 MG, 2X/DAY IF NEEDED
     Route: 048
     Dates: start: 20090910
  19. ONGLYZA [Concomitant]
     Active Substance: SAXAGLIPTIN HYDROCHLORIDE
     Dosage: 5 MG, 1X/DAY
     Route: 048
     Dates: start: 20120816

REACTIONS (9)
  - Sleep disorder [Unknown]
  - Dizziness [Unknown]
  - Tendon rupture [Recovering/Resolving]
  - Product prescribing error [Unknown]
  - Pain [Recovering/Resolving]
  - Eructation [Unknown]
  - Irritability [Not Recovered/Not Resolved]
  - Agitation [Not Recovered/Not Resolved]
  - Anxiety [Not Recovered/Not Resolved]

NARRATIVE: CASE EVENT DATE: 201103
